FAERS Safety Report 19476587 (Version 1)
Quarter: 2021Q2

REPORT INFORMATION
  Report Type: Other
  Country: BR (occurrence: BR)
  Receive Date: 20210630
  Receipt Date: 20210630
  Transmission Date: 20210717
  Serious: Yes (Other)
  Sender: FDA-Public Use
  Company Number: BR-ROCHE-2857845

PATIENT
  Age: 27 Year
  Sex: Female

DRUGS (5)
  1. OCREVUS [Suspect]
     Active Substance: OCRELIZUMAB
     Indication: MULTIPLE SCLEROSIS
     Dosage: 300 MG/10 ML
     Route: 042
     Dates: start: 20191023
  2. SERENACE [Concomitant]
     Active Substance: HALOPERIDOL
     Indication: ANXIETY
     Route: 048
  3. QUETROS [Concomitant]
     Active Substance: QUETIAPINE
     Indication: DEPRESSION
     Route: 048
  4. QUETROS [Concomitant]
     Active Substance: QUETIAPINE
     Indication: ANXIETY
     Dosage: WHEN HAVING CRISES
     Route: 048
  5. SERENACE [Concomitant]
     Active Substance: HALOPERIDOL
     Indication: DEPRESSION

REACTIONS (5)
  - Abdominal pain [Unknown]
  - Oropharyngeal spasm [Unknown]
  - Rash erythematous [Unknown]
  - Chills [Unknown]
  - Malaise [Unknown]

NARRATIVE: CASE EVENT DATE: 20191023
